FAERS Safety Report 6728173-6 (Version None)
Quarter: 2010Q2

REPORT INFORMATION
  Report Type: 
  Country: None (occurrence: None)
  Receive Date: 20100517
  Receipt Date: 20100506
  Transmission Date: 20101027
  Serious: Yes (Hospitalization)
  Sender: FDA-Public Use
  Company Number: B0572393C

PATIENT
  Age: 44 Year
  Sex: Female
  Weight: 60 kg

DRUGS (3)
  1. LAPATINIB [Suspect]
     Indication: BREAST CANCER
     Dosage: 1250MG PER DAY
     Route: 048
     Dates: start: 20090414
  2. PACLITAXEL [Suspect]
     Indication: BREAST CANCER
     Dosage: 260MG EVERY 3 WEEKS
     Route: 042
     Dates: start: 20090414
  3. MYOCET [Suspect]
     Indication: BREAST CANCER
     Dosage: 90MG EVERY 3 WEEKS
     Route: 042
     Dates: start: 20090414

REACTIONS (4)
  - FEBRILE NEUTROPENIA [None]
  - PAIN [None]
  - PYREXIA [None]
  - RASH [None]
